FAERS Safety Report 15412765 (Version 2)
Quarter: 2019Q2

REPORT INFORMATION
  Report Type: Report from Study
  Country: IN (occurrence: IN)
  Receive Date: 20180921
  Receipt Date: 20190527
  Transmission Date: 20190711
  Serious: Yes (Other)
  Sender: FDA-Public Use
  Company Number: PHHY2018IN097719

PATIENT
  Age: 55 Year
  Sex: Female

DRUGS (4)
  1. THYRONORM [Concomitant]
     Active Substance: LEVOTHYROXINE
     Dosage: 125 MG, QD
     Route: 065
     Dates: start: 20180910
  2. SPEXIB [Suspect]
     Active Substance: CERITINIB
     Indication: NON-SMALL CELL LUNG CANCER
     Dosage: 450 MG, QD
     Route: 048
     Dates: start: 20171010, end: 20171101
  3. THYRONORM [Concomitant]
     Active Substance: LEVOTHYROXINE
     Indication: PRODUCT USED FOR UNKNOWN INDICATION
     Dosage: 75 MG, QD
     Route: 065
  4. SPEXIB [Suspect]
     Active Substance: CERITINIB
     Dosage: 300 MG, QD
     Route: 048
     Dates: start: 20171102, end: 20190520

REACTIONS (5)
  - Drug resistance [Not Recovered/Not Resolved]
  - Blood thyroid stimulating hormone increased [Not Recovered/Not Resolved]
  - Sputum increased [Not Recovered/Not Resolved]
  - Cough [Not Recovered/Not Resolved]
  - Visual impairment [Recovered/Resolved]

NARRATIVE: CASE EVENT DATE: 20180813
